FAERS Safety Report 23260098 (Version 1)
Quarter: 2023Q4

REPORT INFORMATION
  Report Type: Spontaneous
  Country: US (occurrence: US)
  Receive Date: 20231204
  Receipt Date: 20231204
  Transmission Date: 20240110
  Serious: No
  Sender: FDA-Public Use
  Company Number: US-JNJFOC-20231167836

PATIENT
  Age: 71 Year
  Sex: Female
  Weight: 83.082 kg

DRUGS (1)
  1. CONCERTA [Suspect]
     Active Substance: METHYLPHENIDATE HYDROCHLORIDE
     Indication: Narcolepsy
     Dosage: STARTED TAKING CONCERTA SOMEWHERE IN THE 1990S?PRESCRIBED CONCERTA (54 MG - TABLET) FOR THE PAST 30
     Route: 065

REACTIONS (3)
  - Off label use [Unknown]
  - Product dose omission issue [Unknown]
  - Product availability issue [Unknown]
